FAERS Safety Report 5904379-0 (Version None)
Quarter: 2008Q4

REPORT INFORMATION
  Report Type: 
  Country: None (occurrence: None)
  Receive Date: 20081001
  Receipt Date: 20080926
  Transmission Date: 20090506
  Serious: Yes (Other)
  Sender: FDA-Public Use
  Company Number: PHHY2008BR22702

PATIENT
  Sex: Male
  Weight: 89 kg

DRUGS (2)
  1. DIOVAN HCT [Suspect]
     Dosage: 160/12.5 MG IN NIGHT
     Route: 048
     Dates: start: 20080922
  2. EXFORGE [Concomitant]
     Dosage: 160/5 MG

REACTIONS (4)
  - BLOOD PRESSURE INCREASED [None]
  - DIZZINESS [None]
  - DRUG DISPENSING ERROR [None]
  - HEART RATE DECREASED [None]
